FAERS Safety Report 10256631 (Version 1)
Quarter: 2014Q2

REPORT INFORMATION
  Report Type: Spontaneous
  Country: US (occurrence: US)
  Receive Date: 20140624
  Receipt Date: 20140624
  Transmission Date: 20141212
  Serious: Yes (Death)
  Sender: FDA-Public Use
  Company Number: US-BRISTOL-MYERS SQUIBB COMPANY-21025598

PATIENT
  Age: 52 Year
  Sex: Male

DRUGS (1)
  1. ONGLYZA TABS 5 MG [Suspect]
     Route: 048

REACTIONS (1)
  - Death [Fatal]
